FAERS Safety Report 12166078 (Version 3)
Quarter: 2016Q2

REPORT INFORMATION
  Report Type: Report from Study
  Country: US (occurrence: US)
  Receive Date: 20160309
  Receipt Date: 20160404
  Transmission Date: 20160815
  Serious: Yes (Other)
  Sender: FDA-Public Use
  Company Number: US-GILEAD-2016-0202563

PATIENT
  Age: 11 Year
  Sex: Female

DRUGS (13)
  1. COLACE [Concomitant]
     Active Substance: DOCUSATE SODIUM
  2. IRON [Concomitant]
     Active Substance: IRON
  3. LASIX [Concomitant]
     Active Substance: FUROSEMIDE
  4. PREVACID [Concomitant]
     Active Substance: LANSOPRAZOLE
  5. DIGOXIN. [Concomitant]
     Active Substance: DIGOXIN
  6. MULTIVITAMIN                       /00097801/ [Concomitant]
     Active Substance: VITAMINS
  7. WARFARIN [Concomitant]
     Active Substance: WARFARIN
  8. ADCIRCA [Concomitant]
     Active Substance: TADALAFIL
  9. MIDODRINE [Concomitant]
     Active Substance: MIDODRINE
  10. DIURIL                             /00011801/ [Concomitant]
  11. FERROUS SULFATE. [Concomitant]
     Active Substance: FERROUS SULFATE
  12. AMBRISENTAN [Suspect]
     Active Substance: AMBRISENTAN
     Indication: PULMONARY HYPERTENSION
     Dosage: 5 MG, QD
     Route: 065
     Dates: start: 20131122
  13. REMODULIN [Concomitant]
     Active Substance: TREPROSTINIL
     Dosage: 99 UNK, UNK
     Route: 042
     Dates: start: 20131217

REACTIONS (3)
  - Liver function test increased [Recovered/Resolved]
  - Hepatic enzyme increased [Unknown]
  - Off label use [Recovered/Resolved]

NARRATIVE: CASE EVENT DATE: 20131122
